FAERS Safety Report 4646117-8 (Version None)
Quarter: 2005Q2

REPORT INFORMATION
  Report Type: 
  Country: None (occurrence: None)
  Receive Date: 20050427
  Receipt Date: 20040629
  Transmission Date: 20051028
  Serious: No
  Sender: FDA-Public Use
  Company Number: US-GLAXOSMITHKLINE-A0516538A

PATIENT
  Sex: Male

DRUGS (1)
  1. ZOFRAN [Suspect]
     Route: 048
     Dates: start: 20040101

REACTIONS (1)
  - VOMITING [None]
